FAERS Safety Report 5288330-5 (Version None)
Quarter: 2007Q1

REPORT INFORMATION
  Report Type: 
  Country: None (occurrence: None)
  Receive Date: 20070116
  Receipt Date: 20060331
  Transmission Date: 20070707
  Serious: No
  Sender: FDA-Public Use
  Company Number: FEI2006-0411

PATIENT
  Age: 40 Year
  Sex: Female
  Weight: 61.6892 kg

DRUGS (1)
  1. INTRAUTERINE COPPER CONTRACEPTIVE [Suspect]
     Indication: CONTRACEPTION
     Dosage: INTRA-UTERINE
     Route: 015
     Dates: start: 19950101, end: 20060324

REACTIONS (1)
  - IUCD COMPLICATION [None]
